FAERS Safety Report 12770260 (Version 3)
Quarter: 2017Q1

REPORT INFORMATION
  Report Type: Spontaneous
  Country: US (occurrence: US)
  Receive Date: 20160922
  Receipt Date: 20170322
  Transmission Date: 20170428
  Serious: Yes (Other)
  Sender: FDA-Public Use
  Company Number: US-009507513-1609USA007223

PATIENT
  Age: 71 Year
  Sex: Female

DRUGS (15)
  1. FISH OIL [Concomitant]
     Active Substance: FISH OIL
     Dosage: 1000 MG, UNK
     Dates: start: 20151229
  2. TRAMADOL HYDROCHLORIDE. [Concomitant]
     Active Substance: TRAMADOL HYDROCHLORIDE
     Dosage: 50 MG, UNK
     Dates: start: 20151229
  3. CYCLOBENZAPR [Concomitant]
     Dosage: 10 MG, UNK
     Dates: start: 20151229
  4. POTASSIUM [Concomitant]
     Active Substance: POTASSIUM
     Dosage: 75 MG, UNK
     Dates: start: 20151229
  5. SYLATRON [Suspect]
     Active Substance: PEGINTERFERON ALFA-2B
     Dosage: 80 MICROGRAM, QW
     Route: 058
     Dates: start: 20151231
  6. DIGOXIN. [Concomitant]
     Active Substance: DIGOXIN
     Dosage: 0.125 MG, UNK
     Dates: start: 20151229
  7. KETOPROFEN. [Concomitant]
     Active Substance: KETOPROFEN
     Dosage: 50 MG, UNK
     Dates: start: 20151229
  8. LEVOTHYROXINE SODIUM. [Concomitant]
     Active Substance: LEVOTHYROXINE SODIUM
     Dosage: UNK
  9. VITAMIN D [Concomitant]
     Active Substance: CHOLECALCIFEROL
     Dosage: 50000 IU, UNK
     Dates: start: 20151229
  10. HYDROCHLOROT [Concomitant]
     Active Substance: HYDROCHLOROTHIAZIDE
     Dosage: 12.5 MG, UNK
     Dates: start: 20160518
  11. VITAMIN B12 [Concomitant]
     Active Substance: CYANOCOBALAMIN
     Dosage: 100 MICROGRAM, UNK
     Dates: start: 20151229
  12. SYLATRON [Suspect]
     Active Substance: PEGINTERFERON ALFA-2B
     Indication: MALIGNANT MELANOMA IN SITU
     Dosage: 200 MICROGRAM SDV, WEEKLY
     Route: 058
     Dates: start: 20151231
  13. ELIQUIS [Concomitant]
     Active Substance: APIXABAN
     Dosage: 2.5 MG, UNK
     Dates: start: 20170110
  14. ACYCLOVIR. [Concomitant]
     Active Substance: ACYCLOVIR
     Dosage: 200 MG, UNK
     Dates: start: 20151229
  15. SIMVASTATIN TABLETS, USP [Concomitant]
     Active Substance: SIMVASTATIN
     Dosage: 5 MG, UNK
     Dates: start: 20151229

REACTIONS (11)
  - Thyroid disorder [Unknown]
  - Diarrhoea [Unknown]
  - Drug dose omission [Unknown]
  - Hepatitis [Unknown]
  - Influenza like illness [Unknown]
  - Injection site reaction [Unknown]
  - Fatigue [Unknown]
  - Liver function test increased [Unknown]
  - Influenza like illness [Unknown]
  - Nausea [Unknown]
  - Basedow^s disease [Unknown]

NARRATIVE: CASE EVENT DATE: 201603
